FAERS Safety Report 10102399 (Version 1)
Quarter: 2014Q2

REPORT INFORMATION
  Report Type: Spontaneous
  Country: PL (occurrence: PL)
  Receive Date: 20140424
  Receipt Date: 20140424
  Transmission Date: 20141212
  Serious: Yes (Other)
  Sender: FDA-Public Use
  Company Number: PHHY2014PL046574

PATIENT
  Age: 25 Year
  Sex: Male

DRUGS (7)
  1. CISPLATIN [Suspect]
     Indication: COLORECTAL ADENOCARCINOMA
  2. CISPLATIN [Suspect]
     Indication: CHEMOTHERAPY
  3. 5-FLUOROURACIL [Suspect]
     Indication: COLORECTAL ADENOCARCINOMA
  4. 5-FLUOROURACIL [Suspect]
     Indication: CHEMOTHERAPY
  5. LEUCOVORIN CALCIUM [Suspect]
     Indication: COLORECTAL ADENOCARCINOMA
  6. LEUCOVORIN CALCIUM [Suspect]
     Indication: CHEMOTHERAPY
  7. CHINESE HERBAL MEDICINES [Suspect]

REACTIONS (3)
  - Tubulointerstitial nephritis [Recovered/Resolved]
  - Renal failure [Recovered/Resolved]
  - Metastases to liver [Unknown]
